FAERS Safety Report 8546176-6 (Version None)
Quarter: 2012Q3

REPORT INFORMATION
  Report Type: 
  Country: None (occurrence: None)
  Receive Date: 20120727
  Receipt Date: 20120718
  Transmission Date: 20120928
  Serious: Yes (Hospitalization)
  Sender: FDA-Public Use
  Company Number: FR-ASTRAZENECA-2012SE51216

PATIENT
  Age: 32475 Day
  Sex: Male

DRUGS (11)
  1. IMOVANE [Concomitant]
  2. CETIRIZINE HCL [Concomitant]
  3. ALENDRONATE SODIUM [Suspect]
     Route: 048
     Dates: end: 20120315
  4. PLAVIX [Concomitant]
  5. PROSCAR [Concomitant]
  6. CALCIUM CARBONATE [Concomitant]
  7. ACETAMINOPHEN [Concomitant]
  8. TAMSULOSIN HYDROCHLORIDE [Suspect]
     Route: 048
     Dates: end: 20120315
  9. ENDOTELON [Concomitant]
  10. LASIX [Suspect]
     Route: 048
  11. ATACAND [Suspect]
     Route: 048
     Dates: end: 20120315

REACTIONS (2)
  - PEMPHIGOID [None]
  - TOXIC SKIN ERUPTION [None]
